FAERS Safety Report 10290559 (Version 1)
Quarter: 2014Q3

REPORT INFORMATION
  Report Type: Spontaneous
  Country: US (occurrence: None)
  Receive Date: 20140707
  Receipt Date: 20140707
  Transmission Date: 20150326
  Serious: Yes (Disabling)
  Sender: FDA-Public Use
  Company Number: None

PATIENT
  Age: 47 Year
  Sex: Female
  Weight: 74.84 kg

DRUGS (1)
  1. LUPRON [Suspect]
     Active Substance: LEUPROLIDE ACETATE
     Indication: UTERINE LEIOMYOMA
     Dosage: MONTHLY INJECTION
     Dates: start: 20130903, end: 20131005

REACTIONS (9)
  - Fatigue [None]
  - Syncope [None]
  - Emotional disorder [None]
  - Abasia [None]
  - Arthralgia [None]
  - Dizziness [None]
  - Headache [None]
  - Blood pressure increased [None]
  - Impaired work ability [None]
